FAERS Safety Report 9798224 (Version 3)
Quarter: 2016Q4

REPORT INFORMATION
  Report Type: Spontaneous
  Country: US (occurrence: US)
  Receive Date: 20140106
  Receipt Date: 20161201
  Transmission Date: 20170207
  Serious: Yes (Hospitalization)
  Sender: FDA-Public Use
  Company Number: US-PFIZER INC-2014000867

PATIENT
  Age: 39 Year
  Sex: Female

DRUGS (15)
  1. TRAZODONE [Concomitant]
     Active Substance: TRAZODONE HYDROCHLORIDE
     Dosage: 50 MG, AS NEEDED
     Route: 048
     Dates: start: 20151123
  2. IBUPROFEN. [Concomitant]
     Active Substance: IBUPROFEN
     Dosage: 600 MG, AS NEEDED, (1 TAB(S) ORALLY EVERY 8 HOURS )
     Route: 048
     Dates: start: 20160411
  3. BACLOFEN. [Concomitant]
     Active Substance: BACLOFEN
     Dosage: 50 MG, DAILY (10 MG, 2 QAM, 1 Q NOON, 2 QPM )
     Route: 048
     Dates: start: 20160923
  4. CRANBERRY. [Concomitant]
     Active Substance: CRANBERRY
     Dosage: UNK UNK, 1X/DAY
  5. TIZANIDINE. [Concomitant]
     Active Substance: TIZANIDINE
     Dosage: 8 MG, 3X/DAY,(2 TAB(S) ORALLY EVERY 8 HOURS)
     Route: 048
  6. VITAMIN B COMPLEX [Concomitant]
     Active Substance: CYANOCOBALAMIN\DEXPANTHENOL\NIACINAMIDE\PYRIDOXINE HYDROCHLORIDE\RIBOFLAVIN 5^-PHOSPHATE SODIUM\THIAMINE HYDROCHLORIDE\VITAMIN B COMPLEX
     Dosage: 1 DF, 1X/DAY
     Route: 048
  7. MIRENA L [Concomitant]
     Dosage: UNK (52 MG DEVICE 1 EA BY INTRAUTERAL ADMINISTRATION ONCE)
  8. LYRICA [Suspect]
     Active Substance: PREGABALIN
     Indication: FIBROMYALGIA
     Dosage: 50 MG, 2-3 CAPS 3 TIMES A DAY
     Route: 048
     Dates: start: 20160503
  9. TRAMADOL. [Concomitant]
     Active Substance: TRAMADOL
     Dosage: 50 MG, AS NEEDED, (1 TAB(S) ORALLY AS NEEDED EVERY 4 HOURS)
     Route: 048
  10. COLACE [Concomitant]
     Active Substance: DOCUSATE SODIUM
     Dosage: 100 MG, AS NEEDED
     Route: 048
  11. SULFAMETHOXAZOLE AND TRIMETHOPRIM DOUBLE STRENGTH [Concomitant]
     Active Substance: SULFAMETHOXAZOLE\TRIMETHOPRIM
     Dosage: 1 DF, 2X/DAY, [(SULFAMETHOXAZOLE-800 MG)/(TRIMETHOPRIM-160 MG)]
     Route: 048
     Dates: start: 20161110
  12. VITAMIN D3 [Concomitant]
     Active Substance: CHOLECALCIFEROL
     Dosage: 2000 IU, 1X/DAY, (1 TABS ORALLY ONCE A DAY)
     Route: 048
  13. MYOCALM /00337701/ [Concomitant]
     Indication: HEADACHE
     Dosage: 2-3 TABS UP TO 8-9 DAILY AS NEEDED
  14. BACLOFEN. [Concomitant]
     Active Substance: BACLOFEN
     Dosage: 60 MG, AS NEEDED (10 MG, AS NEEDED UP TO SIX A DAY ORALLY THREE TIMES A DAY)
     Route: 048
  15. CIPRO [Concomitant]
     Active Substance: CIPROFLOXACIN HYDROCHLORIDE
     Dosage: 250 MG, 2X/DAY, (1 TAB(S) ORALLY EVERY 12 HOURS)
     Route: 048
     Dates: start: 20161102

REACTIONS (2)
  - Intentional product misuse [Unknown]
  - Withdrawal syndrome [Unknown]
